FAERS Safety Report 19115903 (Version 2)
Quarter: 2021Q2

REPORT INFORMATION
  Report Type: Report from Study
  Country: US (occurrence: US)
  Receive Date: 20210409
  Receipt Date: 20210507
  Transmission Date: 20210717
  Serious: Yes (Death, Hospitalization, Other)
  Sender: FDA-Public Use
  Company Number: US-JNJFOC-20210408342

PATIENT
  Age: 85 Year
  Sex: Female
  Weight: 61.4 kg

DRUGS (3)
  1. ELIQUIS [Concomitant]
     Active Substance: APIXABAN
  2. TADALAFIL. [Concomitant]
     Active Substance: TADALAFIL
  3. SELEXIPAG [Suspect]
     Active Substance: SELEXIPAG
     Indication: PULMONARY HYPERTENSION
     Route: 048

REACTIONS (3)
  - Unresponsive to stimuli [Unknown]
  - Chronic obstructive pulmonary disease [Unknown]
  - Death [Fatal]
